FAERS Safety Report 10392287 (Version 1)
Quarter: 2014Q3

REPORT INFORMATION
  Report Type: Spontaneous
  Country: US (occurrence: US)
  Receive Date: 20140819
  Receipt Date: 20140819
  Transmission Date: 20150326
  Serious: Yes (Other)
  Sender: FDA-Public Use
  Company Number: US-THROMBOGENICS INC-JET-2014-469

PATIENT
  Age: 65 Year
  Sex: Female

DRUGS (1)
  1. JETREA [Suspect]
     Active Substance: OCRIPLASMIN
     Indication: PRODUCT USED FOR UNKNOWN INDICATION
     Dosage: 0.125 MG, ONE TIME DOSE
     Route: 031
     Dates: start: 20140729, end: 20140729

REACTIONS (4)
  - Visual acuity reduced [Unknown]
  - Retinal injury [Unknown]
  - Visual impairment [Unknown]
  - Colour blindness acquired [Unknown]

NARRATIVE: CASE EVENT DATE: 20140801
